FAERS Safety Report 9748135 (Version 1)
Quarter: 2013Q4

REPORT INFORMATION
  Report Type: Spontaneous
  Country: US (occurrence: US)
  Receive Date: 20131212
  Receipt Date: 20131212
  Transmission Date: 20140711
  Serious: No
  Sender: FDA-Public Use
  Company Number: US-PFIZER INC-2013355075

PATIENT
  Age: 45 Year
  Sex: Male

DRUGS (5)
  1. XELJANZ [Suspect]
     Dosage: 5 MG, 2X/DAY
     Route: 048
  2. TRAMADOL HYDROCHLORIDE [Concomitant]
     Dosage: UNK
  3. DOXEPIN HYDROCHLORIDE [Concomitant]
     Dosage: UNK
  4. DICYCLOMINE HCL [Concomitant]
     Dosage: UNK
  5. DICLOFENAC SODIUM ER [Concomitant]
     Dosage: UNK

REACTIONS (5)
  - Pain [Unknown]
  - Pyrexia [Unknown]
  - Headache [Unknown]
  - Diarrhoea [Unknown]
  - Eye swelling [Unknown]
